FAERS Safety Report 12641876 (Version 2)
Quarter: 2016Q4

REPORT INFORMATION
  Report Type: Spontaneous
  Country: GB (occurrence: GB)
  Receive Date: 20160810
  Receipt Date: 20161003
  Transmission Date: 20170207
  Serious: Yes (Hospitalization)
  Sender: FDA-Public Use
  Company Number: GB-JNJFOC-20160802724

PATIENT
  Age: 16 Year
  Sex: Female
  Weight: 52.9 kg

DRUGS (1)
  1. REMICADE [Suspect]
     Active Substance: INFLIXIMAB
     Indication: JUVENILE IDIOPATHIC ARTHRITIS
     Route: 042
     Dates: start: 20160722, end: 20160722

REACTIONS (15)
  - Presyncope [Recovered/Resolved]
  - Blepharospasm [Recovered/Resolved]
  - Peripheral circulatory failure [Recovered/Resolved]
  - Metabolic acidosis [Recovered/Resolved]
  - Infusion related reaction [Recovered/Resolved]
  - Blood lactic acid increased [Recovered/Resolved]
  - Product use issue [Unknown]
  - Drooling [Recovered/Resolved]
  - Dyskinesia [Recovered/Resolved]
  - Heart rate increased [Recovered/Resolved]
  - Malaise [Recovered/Resolved]
  - Seizure [Recovered/Resolved]
  - Postictal state [Recovered/Resolved]
  - Hypertension [Recovered/Resolved]
  - Off label use [Unknown]

NARRATIVE: CASE EVENT DATE: 20160622
